FAERS Safety Report 5252850-X (Version None)
Quarter: 2007Q1

REPORT INFORMATION
  Report Type: 
  Country: None (occurrence: None)
  Receive Date: 20070227
  Receipt Date: 20070215
  Transmission Date: 20070707
  Serious: Yes (Hospitalization)
  Sender: FDA-Public Use
  Company Number: GXKR2007GB01716

PATIENT
  Age: 73 Year
  Sex: Female
  Weight: 80 kg

DRUGS (3)
  1. CITALOPRAM HYDROBROMIDE [Suspect]
     Indication: DEPRESSION
     Dosage: 20 MG, UNK, ORAL
     Route: 048
     Dates: start: 20070106, end: 20070107
  2. CALCICHEW D3 (CALCIUM CARBONATE, COLECALCIFEROL) UNKNOWN [Concomitant]
  3. FERROUS SULFATE (FERROUS SULFATE) UNKNOWN [Concomitant]

REACTIONS (1)
  - GLAUCOMA [None]
